FAERS Safety Report 6803682-X (Version None)
Quarter: 2010Q2

REPORT INFORMATION
  Report Type: 
  Country: None (occurrence: None)
  Receive Date: 20100628
  Receipt Date: 20100526
  Transmission Date: 20101027
  Serious: No
  Sender: FDA-Public Use
  Company Number: US-BAYER-201024045NA

PATIENT
  Age: 32 Year
  Sex: Female

DRUGS (3)
  1. ULTRAVIST 300 [Suspect]
     Indication: COMPUTERISED TOMOGRAM ABDOMEN
     Dosage: TOTAL DAILY DOSE: 75 ML
     Route: 042
     Dates: start: 20100526, end: 20100526
  2. LOESTRIN 1.5/30 [Concomitant]
  3. VOLUVEN [Concomitant]
     Route: 048
     Dates: start: 20100526, end: 20100526

REACTIONS (3)
  - ERYTHEMA [None]
  - RASH [None]
  - URTICARIA [None]
